FAERS Safety Report 7481918-2 (Version None)
Quarter: 2011Q2

REPORT INFORMATION
  Report Type: 
  Country: None (occurrence: None)
  Receive Date: 20110516
  Receipt Date: 20110505
  Transmission Date: 20111010
  Serious: Yes (Hospitalization)
  Sender: FDA-Public Use
  Company Number: US-ASTRAZENECA-2008UW15905

PATIENT
  Age: 46 Year
  Sex: Female

DRUGS (2)
  1. NEXIUM [Suspect]
     Route: 048
     Dates: start: 20070701, end: 20080522
  2. NEXIUM [Suspect]
     Route: 048

REACTIONS (3)
  - PHARYNGEAL OPERATION [None]
  - CHEST PAIN [None]
  - MALAISE [None]
